FAERS Safety Report 24173723 (Version 2)
Quarter: 2024Q3

REPORT INFORMATION
  Report Type: Report from Study
  Country: US (occurrence: US)
  Receive Date: 20240805
  Receipt Date: 20240909
  Transmission Date: 20241016
  Serious: Yes (Life-Threatening)
  Sender: JOHNSON AND JOHNSON
  Company Number: US-JNJFOC-20240808224

PATIENT
  Age: 57 Year
  Sex: Female
  Weight: 124.5 kg

DRUGS (2)
  1. SPRAVATO [Suspect]
     Active Substance: ESKETAMINE
     Indication: Depression
     Dosage: 56 MG, 4 TOTAL DOSES
     Dates: start: 20210910, end: 20210930
  2. SPRAVATO [Suspect]
     Active Substance: ESKETAMINE
     Dosage: 84  MG, 39 TOTAL DOSES
     Dates: start: 20211004, end: 20240131

REACTIONS (1)
  - Diffuse large B-cell lymphoma [Unknown]

NARRATIVE: CASE EVENT DATE: 20240701
